FAERS Safety Report 4764581-0 (Version None)
Quarter: 2005Q3

REPORT INFORMATION
  Report Type: 
  Country: None (occurrence: None)
  Receive Date: 20050907
  Receipt Date: 20050824
  Transmission Date: 20060218
  Serious: Yes (Death)
  Sender: FDA-Public Use
  Company Number: 2005-03243

PATIENT
  Sex: Female
  Weight: 0.8 kg

DRUGS (4)
  1. NIFEDIPINE [Suspect]
     Indication: TOCOLYSIS
     Dosage: TRANSPLACENTAL
     Route: 064
  2. ATOSIBAN (ATOSIBAN) [Concomitant]
  3. STEROIDS [Concomitant]
  4. INDOMETHACIN [Concomitant]

REACTIONS (4)
  - BRADYCARDIA NEONATAL [None]
  - DRUG EXPOSURE DURING PREGNANCY [None]
  - INTRA-UTERINE DEATH [None]
  - PLACENTAL DISORDER [None]
